FAERS Safety Report 8823136 (Version 1)
Quarter: 2012Q4

REPORT INFORMATION
  Report Type: Report from Study
  Country: CA (occurrence: CA)
  Receive Date: 20121003
  Receipt Date: 20121003
  Transmission Date: 20130627
  Serious: Yes (Other)
  Sender: FDA-Public Use
  Company Number: CA-ROCHE-1131814

PATIENT
  Sex: Male
  Weight: 77.18 kg

DRUGS (6)
  1. AVASTIN [Suspect]
     Indication: COLORECTAL CANCER
     Route: 042
     Dates: start: 20110107
  2. XELODA [Suspect]
     Indication: PRODUCT USED FOR UNKNOWN INDICATION
     Route: 048
  3. PROMETHAZINE [Concomitant]
  4. DECADRON [Concomitant]
  5. ZOFRAN [Concomitant]
  6. COSOPT [Concomitant]

REACTIONS (3)
  - Weight decreased [Not Recovered/Not Resolved]
  - Post procedural complication [Unknown]
  - Dental caries [Recovered/Resolved]
